FAERS Safety Report 8916592 (Version 3)
Quarter: 2013Q1

REPORT INFORMATION
  Report Type: Spontaneous
  Country: DE (occurrence: DE)
  Receive Date: 20121120
  Receipt Date: 20130123
  Transmission Date: 20140127
  Serious: Yes (Other)
  Sender: FDA-Public Use
  Company Number: PHHY2012DE097516

PATIENT
  Age: 55 Year
  Sex: Male

DRUGS (4)
  1. EXTAVIA [Suspect]
     Indication: MULTIPLE SCLEROSIS
     Dosage: 0.25 ML, QOD (62.5 MCG/ML, QOD)
     Route: 058
  2. EXTAVIA [Suspect]
     Dosage: 0.75 ML, QOD (187.5 MCG/ML, QOD)
     Route: 058
  3. EXTAVIA [Suspect]
     Dosage: 1.0 ML, QOD (250 MCG/ML, QOD)
     Route: 058
     Dates: start: 20120913
  4. EXTAVIA [Suspect]
     Dosage: 0.75 ML, QOD (187.5 MCG/ML, QOD)
     Route: 058
     Dates: start: 20121025

REACTIONS (4)
  - Infection [Recovered/Resolved]
  - Pyrexia [Recovered/Resolved]
  - Dizziness [Recovered/Resolved]
  - Influenza like illness [Recovered/Resolved]
